FAERS Safety Report 6124334-8 (Version None)
Quarter: 2009Q1

REPORT INFORMATION
  Report Type: 
  Country: None (occurrence: None)
  Receive Date: 20090317
  Receipt Date: 20090304
  Transmission Date: 20090719
  Serious: Yes (Other)
  Sender: FDA-Public Use
  Company Number: 2009AP000860

PATIENT
  Age: 65 Year
  Sex: Male

DRUGS (3)
  1. VALPROIC ACID SYRUP [Suspect]
     Dosage: 750 MG; BID;
  2. RISPERIDONE [Suspect]
     Dosage: 3 MG; BID;
  3. CARBAMAZEPINE [Concomitant]

REACTIONS (2)
  - DRUG INTERACTION [None]
  - PLEUROTHOTONUS [None]
